FAERS Safety Report 4649314-0 (Version None)
Quarter: 2005Q2

REPORT INFORMATION
  Report Type: 
  Country: None (occurrence: None)
  Receive Date: 20050429
  Receipt Date: 20050425
  Transmission Date: 20051028
  Serious: Yes (Death, Other)
  Sender: FDA-Public Use
  Company Number: US-MERCK-0504USA04390

PATIENT

DRUGS (2)
  1. VYTORIN [Suspect]
     Indication: BLOOD CHOLESTEROL INCREASED
     Route: 048
  2. ALCOHOL [Concomitant]
     Route: 065

REACTIONS (2)
  - DEATH [None]
  - HEPATIC FAILURE [None]
